FAERS Safety Report 10159566 (Version 2)
Quarter: 2014Q2

REPORT INFORMATION
  Report Type: Spontaneous
  Country: CA (occurrence: CA)
  Receive Date: 20140508
  Receipt Date: 20140609
  Transmission Date: 20141212
  Serious: Yes (Other)
  Sender: FDA-Public Use
  Company Number: 2014SP001414

PATIENT
  Sex: 0

DRUGS (6)
  1. OMNARIS NASAL SPRAY [Suspect]
     Indication: PRODUCT USED FOR UNKNOWN INDICATION
     Route: 045
  2. CELEBREX [Concomitant]
  3. COLCHICINE [Concomitant]
  4. COUGH AND COLD PREPARATIONS [Concomitant]
  5. NOVO-METHACIN [Concomitant]
  6. OXYCODONE / ACETAMINOPHEN [Concomitant]

REACTIONS (2)
  - Prescribed overdose [Unknown]
  - Dyspnoea [Unknown]
